FAERS Safety Report 5172287-1 (Version None)
Quarter: 2006Q4

REPORT INFORMATION
  Report Type: 
  Country: None (occurrence: None)
  Receive Date: 20061205
  Receipt Date: 20061101
  Transmission Date: 20070319
  Serious: Yes (Other)
  Sender: FDA-Public Use
  Company Number: 2006114465

PATIENT
  Age: 76 Year
  Sex: Female
  Weight: 76.6579 kg

DRUGS (5)
  1. XALATAN [Suspect]
     Indication: OPEN ANGLE GLAUCOMA
     Dosage: 1 DROP (1.5 MCG), INTRAOCULAR
     Route: 031
     Dates: start: 20060913
  2. CALAN [Concomitant]
  3. ENALAPRIL MALEATE [Concomitant]
  4. NEXIUM [Concomitant]
  5. ASPIRIN [Concomitant]

REACTIONS (5)
  - BONE PAIN [None]
  - EYE PAIN [None]
  - HAEMOPTYSIS [None]
  - RESPIRATORY TRACT HAEMORRHAGE [None]
  - SINUSITIS [None]
